FAERS Safety Report 18904817 (Version 2)
Quarter: 2021Q1

REPORT INFORMATION
  Report Type: Spontaneous
  Country: US (occurrence: US)
  Receive Date: 20210217
  Receipt Date: 20210325
  Transmission Date: 20210420
  Serious: Yes (Other)
  Sender: FDA-Public Use
  Company Number: US-IMPRIMIS NJOF-2106905

PATIENT
  Sex: Female

DRUGS (1)
  1. PREDNISOLONE ACETATE?MOXIFLOXACIN?NEPAFENAC STERILE OPHTHALMIC SUSPENS [Suspect]
     Active Substance: MOXIFLOXACIN\NEPAFENAC\PREDNISOLONE ACETATE
     Indication: POSTERIOR CAPSULE OPACIFICATION
     Route: 047

REACTIONS (2)
  - Skin abrasion [Recovering/Resolving]
  - Vision blurred [Recovering/Resolving]
